FAERS Safety Report 8058709-7 (Version None)
Quarter: 2012Q1

REPORT INFORMATION
  Report Type: 
  Country: None (occurrence: None)
  Receive Date: 20120120
  Receipt Date: 20120116
  Transmission Date: 20120608
  Serious: No
  Sender: FDA-Public Use
  Company Number: US-PFIZER INC-2012013801

PATIENT
  Sex: Female

DRUGS (3)
  1. PERCOCET [Suspect]
  2. POTASSIUM PENICILLIN G [Suspect]
  3. OXYCONTIN [Suspect]

REACTIONS (1)
  - DRUG HYPERSENSITIVITY [None]
